FAERS Safety Report 10012854 (Version 1)
Quarter: 2014Q1

REPORT INFORMATION
  Report Type: Spontaneous
  Country: GB (occurrence: GB)
  Receive Date: 20140314
  Receipt Date: 20140314
  Transmission Date: 20141002
  Serious: Yes (Other)
  Sender: FDA-Public Use
  Company Number: PHHY2014GB027781

PATIENT
  Age: 66 Year
  Sex: Female
  Weight: 78.92 kg

DRUGS (1)
  1. RAMIPRIL [Suspect]
     Indication: HYPERTENSION

REACTIONS (2)
  - Musculoskeletal stiffness [Unknown]
  - Myalgia [Unknown]
